FAERS Safety Report 9323391 (Version 2)
Quarter: 2013Q2

REPORT INFORMATION
  Report Type: Spontaneous
  Country: FR (occurrence: FR)
  Receive Date: 20130603
  Receipt Date: 20130628
  Transmission Date: 20140414
  Serious: Yes (Death)
  Sender: FDA-Public Use
  Company Number: FR-JNJFOC-20130515700

PATIENT
  Age: 48 Year
  Sex: Male

DRUGS (5)
  1. RISPERDAL [Suspect]
     Indication: PRODUCT USED FOR UNKNOWN INDICATION
     Route: 048
     Dates: start: 20130430
  2. DEROXAT [Suspect]
     Indication: PRODUCT USED FOR UNKNOWN INDICATION
     Dosage: 20 MG TABLET; 0.5 TABLET ADMINISTERED
     Route: 048
     Dates: start: 20130430
  3. OMEPRAZOLE [Suspect]
     Indication: PRODUCT USED FOR UNKNOWN INDICATION
     Route: 048
     Dates: start: 20130430
  4. DEPAKINE CHRONO [Suspect]
     Indication: PRODUCT USED FOR UNKNOWN INDICATION
     Dosage: TOTAL DOSE: 1000 MG
     Route: 048
     Dates: start: 20130430
  5. TETRAZEPAM [Suspect]
     Indication: PRODUCT USED FOR UNKNOWN INDICATION
     Dosage: 50 MG; 0.5 TABLET ADMINISTERED
     Route: 048
     Dates: start: 20130430

REACTIONS (4)
  - Cardiac arrest [Fatal]
  - Wrong drug administered [Fatal]
  - Wrong drug administered [Fatal]
  - Medication error [Fatal]
